FAERS Safety Report 9465062 (Version 1)
Quarter: 2013Q3

REPORT INFORMATION
  Report Type: Report from Study
  Country: US (occurrence: US)
  Receive Date: 20130819
  Receipt Date: 20130819
  Transmission Date: 20140515
  Serious: Yes (Hospitalization, Other)
  Sender: FDA-Public Use
  Company Number: US-ROCHE-1260497

PATIENT
  Sex: Female

DRUGS (5)
  1. AVASTIN [Suspect]
     Indication: AGE-RELATED MACULAR DEGENERATION
     Route: 065
     Dates: start: 20130627
  2. ASPIRIN [Concomitant]
     Route: 048
  3. ERGOCALCIFEROL [Concomitant]
     Route: 048
  4. FEXOFENADINE [Concomitant]
     Route: 048
  5. LUCENTIS [Concomitant]
     Route: 065

REACTIONS (7)
  - Cardiac failure congestive [Unknown]
  - Diabetic retinal oedema [Unknown]
  - Diabetic retinopathy [Unknown]
  - Visual acuity reduced [Unknown]
  - Macular degeneration [Unknown]
  - Hot flush [Recovered/Resolved]
  - Blood glucose increased [Unknown]
